FAERS Safety Report 17261596 (Version 5)
Quarter: 2020Q2

REPORT INFORMATION
  Report Type: Spontaneous
  Country: US (occurrence: US)
  Receive Date: 20200113
  Receipt Date: 20200518
  Transmission Date: 20200713
  Serious: Yes (Other)
  Sender: FDA-Public Use
  Company Number: US-GILEAD-2020-0446112

PATIENT
  Age: 63 Year
  Sex: Male

DRUGS (10)
  1. REYATAZ [Concomitant]
     Active Substance: ATAZANAVIR SULFATE
  2. PRAVASTATIN SODIUM. [Concomitant]
     Active Substance: PRAVASTATIN SODIUM
  3. ATORVASTATIN [Concomitant]
     Active Substance: ATORVASTATIN
  4. TRUVADA [Suspect]
     Active Substance: EMTRICITABINE\TENOFOVIR DISOPROXIL FUMARATE
     Dosage: UNK
     Route: 048
     Dates: start: 201501, end: 201602
  5. ASPIR 81 [Concomitant]
     Active Substance: ASPIRIN
     Dosage: 81 MG
  6. NORVIR [Concomitant]
     Active Substance: RITONAVIR
  7. TRIAMCINOLONE [Concomitant]
     Active Substance: TRIAMCINOLONE
  8. TRUVADA [Suspect]
     Active Substance: EMTRICITABINE\TENOFOVIR DISOPROXIL FUMARATE
     Indication: HIV INFECTION
     Dosage: 200-300 MG
     Route: 048
     Dates: start: 20121112, end: 201401
  9. DARUNAVIR [Concomitant]
     Active Substance: DARUNAVIR
  10. NAPROXEN SODIUM. [Concomitant]
     Active Substance: NAPROXEN SODIUM

REACTIONS (11)
  - Renal failure [Unknown]
  - Anxiety [Unknown]
  - Anhedonia [Unknown]
  - Viral load increased [Unknown]
  - Bone density decreased [Unknown]
  - Drug ineffective [Unknown]
  - Pain [Unknown]
  - Chronic kidney disease [Not Recovered/Not Resolved]
  - Skeletal injury [Not Recovered/Not Resolved]
  - Emotional distress [Unknown]
  - Economic problem [Unknown]

NARRATIVE: CASE EVENT DATE: 20170321
